FAERS Safety Report 23644742 (Version 5)
Quarter: 2024Q2

REPORT INFORMATION
  Report Type: Spontaneous
  Country: US (occurrence: US)
  Receive Date: 20240318
  Receipt Date: 20240626
  Transmission Date: 20240715
  Serious: No
  Sender: FDA-Public Use
  Company Number: US-Calliditas-2024CAL00427

PATIENT
  Age: 41 Year
  Sex: Female
  Weight: 82.5 kg

DRUGS (8)
  1. TARPEYO [Suspect]
     Active Substance: BUDESONIDE
     Indication: Haematuria
     Dosage: 16 MG (4 MG CAPSULES) ONCE DAILY
     Route: 048
     Dates: start: 20240131
  2. XARELTO [Concomitant]
     Active Substance: RIVAROXABAN
  3. FARXIGA [Concomitant]
     Active Substance: DAPAGLIFLOZIN PROPANEDIOL
  4. LOSARTAN [Concomitant]
     Active Substance: LOSARTAN
  5. LORATADINE [Concomitant]
     Active Substance: LORATADINE
  6. FISH OIL [Concomitant]
     Active Substance: FISH OIL
  7. CHOLECALCIFEROL [Concomitant]
     Active Substance: CHOLECALCIFEROL
  8. FLONASE [Concomitant]
     Active Substance: FLUTICASONE PROPIONATE

REACTIONS (9)
  - Aphthous ulcer [Recovered/Resolved]
  - Polymenorrhoea [Recovered/Resolved]
  - Emotional disorder [Recovered/Resolved]
  - Crying [Recovered/Resolved]
  - Pharyngeal erythema [Recovered/Resolved]
  - Oral mucosal erythema [Recovered/Resolved]
  - Tongue erythema [Not Recovered/Not Resolved]
  - Glossitis [Not Recovered/Not Resolved]
  - Peripheral swelling [Unknown]

NARRATIVE: CASE EVENT DATE: 20240201
